FAERS Safety Report 14871380 (Version 1)
Quarter: 2018Q2

REPORT INFORMATION
  Report Type: Spontaneous
  Country: US (occurrence: US)
  Receive Date: 20180424
  Receipt Date: 20180424
  Transmission Date: 20180711
  Serious: No
  Sender: FDA-Public Use
  Company Number: None

PATIENT
  Age: 57 Year
  Sex: Female

DRUGS (1)
  1. HUMIRA [Suspect]
     Active Substance: ADALIMUMAB
     Indication: GASTROENTERITIS
     Route: 058
     Dates: start: 20180131, end: 20180326

REACTIONS (2)
  - Vomiting [None]
  - Pain in extremity [None]

NARRATIVE: CASE EVENT DATE: 20180423
